FAERS Safety Report 18518290 (Version 2)
Quarter: 2020Q4

REPORT INFORMATION
  Report Type: Report from Study
  Country: US (occurrence: US)
  Receive Date: 20201118
  Receipt Date: 20201224
  Transmission Date: 20210114
  Serious: Yes (Other)
  Sender: FDA-Public Use
  Company Number: US-SHIRE-US202015426

PATIENT
  Age: 59 Year
  Sex: Female

DRUGS (2)
  1. HUMAN IMMUNOGLOBULIN; HYALURONIDASE [Suspect]
     Active Substance: HUMAN IMMUNOGLOBULIN G\HYALURONIDASE RECOMBINANT HUMAN
     Indication: SELECTIVE IGG SUBCLASS DEFICIENCY
     Dosage: UNK UNK, 1X/2WKS
     Route: 065
  2. HUMAN IMMUNOGLOBULIN; HYALURONIDASE [Suspect]
     Active Substance: HUMAN IMMUNOGLOBULIN G\HYALURONIDASE RECOMBINANT HUMAN
     Dosage: 15 GRAM, 1X/2WKS
     Route: 065

REACTIONS (21)
  - Feeling abnormal [Unknown]
  - Epistaxis [Unknown]
  - Dyspnoea [Unknown]
  - Infusion site mass [Unknown]
  - Bladder cancer [Unknown]
  - Suspected COVID-19 [Unknown]
  - Arthralgia [Unknown]
  - Dizziness [Unknown]
  - Dental operation [Unknown]
  - Haemoptysis [Unknown]
  - Back pain [Unknown]
  - Nausea [Unknown]
  - Illness [Unknown]
  - Anxiety [Unknown]
  - Abdominal discomfort [Unknown]
  - Fatigue [Unknown]
  - Dehydration [Unknown]
  - Oropharyngeal pain [Unknown]
  - Asthma [Unknown]
  - Swelling [Unknown]
  - Device infusion issue [Unknown]

NARRATIVE: CASE EVENT DATE: 20200924
